FAERS Safety Report 12776864 (Version 1)
Quarter: 2016Q3

REPORT INFORMATION
  Report Type: Spontaneous
  Country: US (occurrence: US)
  Receive Date: 20160923
  Receipt Date: 20160923
  Transmission Date: 20161109
  Serious: No
  Sender: FDA-Public Use
  Company Number: US-TEVA-689713USA

PATIENT
  Age: 44 Year
  Sex: Male
  Weight: 90.8 kg

DRUGS (4)
  1. OMEGA 3 ACID [Concomitant]
     Indication: NUTRITIONAL SUPPLEMENTATION
  2. PROAIR HFA [Suspect]
     Active Substance: ALBUTEROL SULFATE
     Indication: ASTHMA
  3. ACETYLSALICYLIC ACID [Concomitant]
     Active Substance: ASPIRIN
  4. PROAIR HFA [Suspect]
     Active Substance: ALBUTEROL SULFATE
     Indication: UPPER AIRWAY OBSTRUCTION

REACTIONS (1)
  - Blood alcohol increased [Recovered/Resolved]

NARRATIVE: CASE EVENT DATE: 20160802
